FAERS Safety Report 25010169 (Version 1)
Quarter: 2025Q1

REPORT INFORMATION
  Report Type: Report from Study
  Country: US (occurrence: US)
  Receive Date: 20250225
  Receipt Date: 20250225
  Transmission Date: 20250409
  Serious: Yes (Hospitalization, Other)
  Sender: PFIZER
  Company Number: US-PFIZER INC-202500041638

PATIENT
  Age: 79 Year
  Sex: Female

DRUGS (1)
  1. LORBRENA [Suspect]
     Active Substance: LORLATINIB
     Dosage: 100MG TABLET-1 TABLET DAILY BY MOUTH
     Route: 048
     Dates: end: 20250123

REACTIONS (4)
  - Hallucination [Unknown]
  - Muscle twitching [Unknown]
  - Speech disorder [Unknown]
  - Pneumonia [Unknown]

NARRATIVE: CASE EVENT DATE: 20250101
